FAERS Safety Report 18744386 (Version 3)
Quarter: 2021Q2

REPORT INFORMATION
  Report Type: Spontaneous
  Country: US (occurrence: US)
  Receive Date: 20210114
  Receipt Date: 20210617
  Transmission Date: 20210717
  Serious: Yes (Hospitalization, Other)
  Sender: FDA-Public Use
  Company Number: US-ASTRAZENECA-2021A002216

PATIENT
  Age: 20240 Day
  Sex: Male
  Weight: 164.2 kg

DRUGS (23)
  1. FARXIGA [Suspect]
     Active Substance: DAPAGLIFLOZIN PROPANEDIOL
     Indication: WEIGHT DECREASED
     Route: 048
     Dates: start: 20180221, end: 201812
  2. HYDROCHLOROTHIAZIDE. [Concomitant]
     Active Substance: HYDROCHLOROTHIAZIDE
  3. GABAPENTIN. [Concomitant]
     Active Substance: GABAPENTIN
  4. JARDIANCE [Concomitant]
     Active Substance: EMPAGLIFLOZIN
  5. PREDNISONE. [Concomitant]
     Active Substance: PREDNISONE
  6. HYDROCODONE?ACETAMINOPHEN [Concomitant]
     Active Substance: ACETAMINOPHEN\HYDROCODONE
  7. GENTAMICIN. [Concomitant]
     Active Substance: GENTAMICIN
  8. FARXIGA [Suspect]
     Active Substance: DAPAGLIFLOZIN PROPANEDIOL
     Indication: BLOOD PRESSURE DECREASED
     Route: 048
     Dates: start: 20180221, end: 201812
  9. TAMSULOSIN [Concomitant]
     Active Substance: TAMSULOSIN
  10. SIMVASTATIN. [Concomitant]
     Active Substance: SIMVASTATIN
  11. VITAMIN D [Concomitant]
     Active Substance: VITAMIN D NOS
  12. ATORVASTATIN CALCIUM. [Concomitant]
     Active Substance: ATORVASTATIN CALCIUM
  13. AMOXICILLIN. [Concomitant]
     Active Substance: AMOXICILLIN
  14. CYCLOBENZAPRINE. [Concomitant]
     Active Substance: CYCLOBENZAPRINE
  15. ASPIRIN. [Concomitant]
     Active Substance: ASPIRIN
  16. METFORMIN [Concomitant]
     Active Substance: METFORMIN HYDROCHLORIDE
  17. FLUTICASONE. [Concomitant]
     Active Substance: FLUTICASONE
  18. OXYCODONE [Concomitant]
     Active Substance: OXYCODONE
  19. LISINOPRIL. [Concomitant]
     Active Substance: LISINOPRIL
  20. PIOGLITAZONE. [Concomitant]
     Active Substance: PIOGLITAZONE
  21. FARXIGA [Suspect]
     Active Substance: DAPAGLIFLOZIN PROPANEDIOL
     Indication: TYPE 2 DIABETES MELLITUS
     Route: 048
     Dates: start: 20180221, end: 201812
  22. AMLODIPINE BESYLATE. [Concomitant]
     Active Substance: AMLODIPINE BESYLATE
  23. BUTALBITAL [Concomitant]
     Active Substance: BUTALBITAL

REACTIONS (9)
  - Acute kidney injury [Unknown]
  - Renal failure [Unknown]
  - Hypotension [Unknown]
  - Chronic kidney disease [Unknown]
  - Fournier^s gangrene [Unknown]
  - Sepsis [Unknown]
  - Scrotal abscess [Unknown]
  - Renal tubular necrosis [Unknown]
  - Wound dehiscence [Unknown]

NARRATIVE: CASE EVENT DATE: 20181211
